FAERS Safety Report 10518155 (Version 2)
Quarter: 2014Q4

REPORT INFORMATION
  Report Type: Spontaneous
  Country: US (occurrence: US)
  Receive Date: 20141015
  Receipt Date: 20141222
  Transmission Date: 20150528
  Serious: No
  Sender: FDA-Public Use
  Company Number: US-BIOGENIDEC-2014BI105471

PATIENT
  Age: 33 Year
  Sex: Male

DRUGS (3)
  1. TECFIDERA [Suspect]
     Active Substance: DIMETHYL FUMARATE
     Indication: MULTIPLE SCLEROSIS
     Route: 048
     Dates: start: 20140919
  2. TECFIDERA [Suspect]
     Active Substance: DIMETHYL FUMARATE
     Indication: MULTIPLE SCLEROSIS
     Route: 048
  3. TECFIDERA [Suspect]
     Active Substance: DIMETHYL FUMARATE
     Indication: MULTIPLE SCLEROSIS
     Route: 048

REACTIONS (8)
  - Accidental underdose [Recovered/Resolved]
  - Insomnia [Unknown]
  - Flushing [Recovered/Resolved]
  - Paraesthesia [Recovered/Resolved]
  - Hot flush [Unknown]
  - Discomfort [Unknown]
  - Multiple sclerosis relapse [Unknown]
  - Negative thoughts [Unknown]

NARRATIVE: CASE EVENT DATE: 20140919
